FAERS Safety Report 7482300-4 (Version None)
Quarter: 2011Q2

REPORT INFORMATION
  Report Type: 
  Country: None (occurrence: None)
  Receive Date: 20110516
  Receipt Date: 20110511
  Transmission Date: 20111010
  Serious: No
  Sender: FDA-Public Use
  Company Number: US-PFIZER INC-2011045112

PATIENT
  Sex: Female

DRUGS (1)
  1. LYRICA [Suspect]
     Dosage: 100-200 MG QD
     Route: 048
     Dates: start: 20080310, end: 20100915

REACTIONS (3)
  - TINNITUS [None]
  - VISION BLURRED [None]
  - OEDEMA PERIPHERAL [None]
